FAERS Safety Report 12630102 (Version 1)
Quarter: 2016Q3

REPORT INFORMATION
  Report Type: Spontaneous
  Country: FR (occurrence: FR)
  Receive Date: 20160808
  Receipt Date: 20160808
  Transmission Date: 20161109
  Serious: Yes (Hospitalization, Other)
  Sender: FDA-Public Use
  Company Number: FR-009507513-1608CAN001608

PATIENT
  Age: 77 Year
  Sex: Male
  Weight: 117 kg

DRUGS (1)
  1. CANCIDAS [Suspect]
     Active Substance: CASPOFUNGIN ACETATE
     Indication: SYSTEMIC CANDIDA
     Dosage: 1 SLOW INFUSION 70 MG/ DAY
     Route: 042
     Dates: start: 20160625, end: 20160701

REACTIONS (4)
  - Hyperphosphatasaemia [Recovering/Resolving]
  - Hepatic enzyme increased [Recovering/Resolving]
  - Transaminases increased [Recovered/Resolved]
  - Hepatitis cholestatic [Recovering/Resolving]

NARRATIVE: CASE EVENT DATE: 20160701
